FAERS Safety Report 10445881 (Version 1)
Quarter: 2014Q3

REPORT INFORMATION
  Report Type: Spontaneous
  Country: US (occurrence: US)
  Receive Date: 20140910
  Receipt Date: 20140910
  Transmission Date: 20150326
  Serious: Yes (Other)
  Sender: FDA-Public Use
  Company Number: US-TARO-2014TAR00306

PATIENT
  Age: 47 Year
  Sex: Female
  Weight: 59.86 kg

DRUGS (5)
  1. PHENYTOIN SODIUM EXTENDED [Suspect]
     Active Substance: PHENYTOIN SODIUM
     Indication: COMPLEX PARTIAL SEIZURES
     Dosage: 100 MG, 2X/DAY
     Route: 048
     Dates: start: 201408, end: 20140830
  2. PHENYTOIN SODIUM EXTENDED [Suspect]
     Active Substance: PHENYTOIN SODIUM
     Indication: EPILEPSY
     Dosage: 100 MG, 3X/DAY
     Route: 048
     Dates: start: 201408, end: 20140830
  3. CARBAMAZEPINE ER [Concomitant]
     Active Substance: CARBAMAZEPINE
     Dosage: 600 MG, 2X/DAY
  4. LEVETIRACETAM. [Concomitant]
     Active Substance: LEVETIRACETAM
     Dosage: 1500 MG, 1X/DAY
  5. LEVETIRACETAM. [Concomitant]
     Active Substance: LEVETIRACETAM
     Dosage: 750 MG, 1X/DAY

REACTIONS (4)
  - Anticonvulsant drug level below therapeutic [Unknown]
  - Convulsion [Recovered/Resolved]
  - Alopecia [Not Recovered/Not Resolved]
  - Product substitution issue [Not Recovered/Not Resolved]

NARRATIVE: CASE EVENT DATE: 201408
